FAERS Safety Report 18976104 (Version 1)
Quarter: 2021Q1

REPORT INFORMATION
  Report Type: Spontaneous
  Country: DK (occurrence: DK)
  Receive Date: 20210305
  Receipt Date: 20210305
  Transmission Date: 20210420
  Serious: Yes (Hospitalization)
  Sender: FDA-Public Use
  Company Number: DK-TEVA-2021-DK-1886519

PATIENT
  Age: 63 Year
  Sex: Male

DRUGS (2)
  1. COLCHICINE. [Suspect]
     Active Substance: COLCHICINE
     Indication: GOUT
     Dosage: STRENGTH: 0,5 MG,UNIT DOSE 0.5MG
     Route: 048
     Dates: start: 20210123, end: 20210124
  2. COLCHICINE. [Suspect]
     Active Substance: COLCHICINE
     Indication: GOUT
     Dosage: STRENGTH: 0,5 MG,UNIT DOSE 1.5MG
     Route: 048
     Dates: start: 20210122, end: 20210122

REACTIONS (1)
  - Nephropathy [Recovered/Resolved]

NARRATIVE: CASE EVENT DATE: 20210122
